FAERS Safety Report 9465522 (Version 2)
Quarter: 2013Q4

REPORT INFORMATION
  Report Type: Spontaneous
  Country: DE (occurrence: DE)
  Receive Date: 20130820
  Receipt Date: 20131025
  Transmission Date: 20140711
  Serious: Yes (Death, Hospitalization, Other)
  Sender: FDA-Public Use
  Company Number: DE-AMGEN-DEUSP2013057220

PATIENT
  Age: 48 Year
  Sex: Male
  Weight: 65 kg

DRUGS (15)
  1. MIMPARA [Suspect]
     Indication: HYPERPARATHYROIDISM SECONDARY
     Dosage: 60 MG, QD
     Route: 048
     Dates: start: 20120716, end: 20130809
  2. DECORTIN-H                         /00016201/ [Concomitant]
     Dosage: 5 MG, QD
     Dates: start: 19991229
  3. SANDIMMUN OPTORAL [Concomitant]
     Dosage: 50 MG, BID
     Dates: start: 20120508
  4. CERTICAN [Concomitant]
     Dosage: 0.5 MG, QD
     Dates: start: 20120508
  5. PLAVIX [Concomitant]
     Dosage: 75 MG, QD
     Dates: start: 20121129
  6. BELOC-ZOK COMP [Concomitant]
     Dosage: 95 MG, BID
     Dates: start: 20121229
  7. NITRENDIPINA [Concomitant]
     Dosage: 20
     Dates: start: 20060824
  8. PANTOZOL                           /01263204/ [Concomitant]
     Dosage: 40 MG, QD
     Dates: start: 20121129
  9. BICANORM [Concomitant]
     Dosage: UNK UNK, TID
     Dates: start: 20120508
  10. MAGNESIUM VERLA                    /00648601/ [Concomitant]
     Dosage: 5 MMOL, BID
     Dates: start: 20120508
  11. ATORVASTATIN 1 A PHARMA [Concomitant]
     Dosage: 10 MG, QD
     Dates: start: 20121129
  12. MOXONIDIN [Concomitant]
     Dosage: 0.3 MG, QD
     Dates: start: 20130408
  13. EBRANTIL                           /00631801/ [Concomitant]
     Dosage: 90 MG, TID
     Dates: start: 19990604
  14. RENVELA [Concomitant]
     Dosage: 800 MG, TID
     Dates: start: 20130508
  15. ASA [Concomitant]
     Dosage: UNK
     Dates: start: 19961111

REACTIONS (38)
  - Cardiac failure [Fatal]
  - Diabetic nephropathy [Unknown]
  - Renal failure chronic [Unknown]
  - Diabetic retinopathy [Unknown]
  - Peripheral artery stenosis [Unknown]
  - Acidosis [Unknown]
  - Cardiac arrest [Unknown]
  - Gastrooesophageal reflux disease [Unknown]
  - Peripheral arterial occlusive disease [Unknown]
  - Coronary artery disease [Unknown]
  - Diabetic neuropathy [Unknown]
  - Hypertensive heart disease [Unknown]
  - Renal cyst [Unknown]
  - Pancreatic atrophy [Unknown]
  - Circulatory collapse [Unknown]
  - Acute respiratory failure [Unknown]
  - Dehydration [Unknown]
  - Renal hypertension [Unknown]
  - Arteriosclerosis [Unknown]
  - Gangrene [Unknown]
  - Blood pressure decreased [Fatal]
  - Electrolyte imbalance [Recovering/Resolving]
  - Gastroenteritis [Recovering/Resolving]
  - Hypokalaemia [Recovered/Resolved]
  - Gynaecomastia [Unknown]
  - Cyst [Unknown]
  - Gastrointestinal inflammation [Unknown]
  - Gastritis [Unknown]
  - Lymphocele [Unknown]
  - Cataract operation [Unknown]
  - Cholelithiasis [Unknown]
  - Splenic calcification [Unknown]
  - Chondrocalcinosis [Unknown]
  - Osteochondrosis [Unknown]
  - Enteritis [Unknown]
  - Scoliosis [Unknown]
  - Hypertension [Unknown]
  - Ear pain [Unknown]
